FAERS Safety Report 7433130-0 (Version None)
Quarter: 2011Q2

REPORT INFORMATION
  Report Type: 
  Country: None (occurrence: None)
  Receive Date: 20110422
  Receipt Date: 20110418
  Transmission Date: 20111010
  Serious: Yes (Hospitalization)
  Sender: FDA-Public Use
  Company Number: US-ABBOTT-11P-163-0719425-00

PATIENT
  Sex: Female
  Weight: 58.566 kg

DRUGS (1)
  1. HUMIRA [Suspect]
     Indication: CROHN'S DISEASE
     Route: 058
     Dates: start: 20100701

REACTIONS (13)
  - WEIGHT DECREASED [None]
  - BLOOD CREATININE ABNORMAL [None]
  - FLUID RETENTION [None]
  - BLOOD ALKALINE PHOSPHATASE INCREASED [None]
  - BLOOD UREA ABNORMAL [None]
  - BENIGN NEOPLASM OF THYROID GLAND [None]
  - CARDIAC FAILURE CONGESTIVE [None]
  - BLOOD POTASSIUM DECREASED [None]
  - ASTHENIA [None]
  - FATIGUE [None]
  - OESOPHAGEAL STENOSIS [None]
  - DYSPNOEA [None]
  - BLOOD IRON DECREASED [None]
